FAERS Safety Report 8692396 (Version 2)
Quarter: 2013Q4

REPORT INFORMATION
  Report Type: Spontaneous
  Country: FR (occurrence: FR)
  Receive Date: 20120730
  Receipt Date: 20131031
  Transmission Date: 20140711
  Serious: Yes (Hospitalization)
  Sender: FDA-Public Use
  Company Number: FR-009507513-1207FRA011353

PATIENT
  Age: 71 Year
  Sex: Female

DRUGS (7)
  1. INVANZ [Suspect]
     Dosage: UNK
     Route: 042
     Dates: end: 20110903
  2. BACTRIM FORTE [Suspect]
     Indication: ANTIFUNGAL PROPHYLAXIS
     Dosage: 1 DF, QD
     Route: 048
     Dates: start: 201108, end: 20110903
  3. ROVALCYTE [Suspect]
     Dosage: 1 DF, BID
     Route: 048
     Dates: start: 201108, end: 20110903
  4. CELLCEPT [Concomitant]
  5. CORTANCYL [Concomitant]
  6. RAPAMUNE [Concomitant]
  7. INEXIUM [Concomitant]

REACTIONS (6)
  - Cerebellar syndrome [Recovered/Resolved]
  - Gait disturbance [Recovered/Resolved]
  - Confusional state [Recovered/Resolved]
  - Hallucination, visual [Recovered/Resolved]
  - Hallucination, auditory [Recovered/Resolved]
  - Disorientation [Recovered/Resolved]
